FAERS Safety Report 16162944 (Version 1)
Quarter: 2019Q2

REPORT INFORMATION
  Report Type: Spontaneous
  Country: FR (occurrence: FR)
  Receive Date: 20190405
  Receipt Date: 20190405
  Transmission Date: 20190711
  Serious: Yes (Hospitalization)
  Sender: FDA-Public Use
  Company Number: FR-ASTRAZENECA-2019SE49744

PATIENT
  Age: 53 Year
  Sex: Female

DRUGS (2)
  1. LOXAPAC [Interacting]
     Active Substance: LOXAPINE
     Indication: MENTAL DISORDER
     Route: 048
     Dates: start: 20190308, end: 20190312
  2. XEROQUEL [Suspect]
     Active Substance: QUETIAPINE FUMARATE
     Indication: MENTAL DISORDER
     Route: 048
     Dates: end: 20190312

REACTIONS (3)
  - Dyskinesia [Recovered/Resolved]
  - Hypertonia [Recovered/Resolved]
  - Macroglossia [Recovered/Resolved]

NARRATIVE: CASE EVENT DATE: 20190312
